FAERS Safety Report 7427230-9 (Version None)
Quarter: 2011Q2

REPORT INFORMATION
  Report Type: 
  Country: None (occurrence: None)
  Receive Date: 20110420
  Receipt Date: 20110418
  Transmission Date: 20111010
  Serious: Yes (Hospitalization, Other)
  Sender: FDA-Public Use
  Company Number: US-PFIZER INC-2011014281

PATIENT
  Sex: Male

DRUGS (3)
  1. NAPROXEN [Concomitant]
     Indication: PAIN
     Dosage: UNK
     Dates: start: 20050101, end: 20090101
  2. CHANTIX [Suspect]
     Indication: SMOKING CESSATION THERAPY
     Dosage: 0.5MG AND 1MG
     Dates: start: 20080805, end: 20090301
  3. LORTAB [Concomitant]
     Indication: PAIN
     Dosage: UNK
     Dates: start: 20050101

REACTIONS (10)
  - ANXIETY [None]
  - AMNESIA [None]
  - ANGER [None]
  - VISUAL IMPAIRMENT [None]
  - DYSPNOEA [None]
  - AGGRESSION [None]
  - CHEST PAIN [None]
  - LOSS OF CONSCIOUSNESS [None]
  - DEPRESSION [None]
  - MOOD SWINGS [None]
